FAERS Safety Report 7411497-7 (Version None)
Quarter: 2011Q2

REPORT INFORMATION
  Report Type: 
  Country: None (occurrence: None)
  Receive Date: 20110413
  Receipt Date: 20110404
  Transmission Date: 20111010
  Serious: Yes (Other)
  Sender: FDA-Public Use
  Company Number: PHFR2011GB01290

PATIENT
  Sex: Male

DRUGS (2)
  1. CLOZARIL [Suspect]
     Indication: SCHIZOPHRENIA
     Dosage: 100 MG, TID
     Route: 048
     Dates: start: 20091002
  2. DIAZEPAM [Concomitant]
     Dosage: UNK DF, UNK

REACTIONS (4)
  - GAZE PALSY [None]
  - OCULOGYRIC CRISIS [None]
  - ANXIETY [None]
  - DRUG ABUSE [None]
